FAERS Safety Report 8275879-6 (Version None)
Quarter: 2012Q2

REPORT INFORMATION
  Report Type: 
  Country: None (occurrence: None)
  Receive Date: 20120412
  Receipt Date: 20120402
  Transmission Date: 20120825
  Serious: Yes (Hospitalization, Other)
  Sender: FDA-Public Use
  Company Number: US-SANOFI-AVENTIS-2012SA011713

PATIENT
  Age: 78 Year
  Sex: Female

DRUGS (3)
  1. ALL OTHER THERAPEUTIC PRODUCTS [Concomitant]
  2. LANTUS [Suspect]
     Dosage: DOSE:25 UNIT(S)
     Route: 058
     Dates: start: 20110101
  3. SOLOSTAR [Suspect]
     Dates: start: 20110101

REACTIONS (3)
  - SPINAL FRACTURE [None]
  - DRY EYE [None]
  - VISUAL ACUITY REDUCED [None]
